FAERS Safety Report 9441117 (Version 5)
Quarter: 2013Q4

REPORT INFORMATION
  Report Type: Spontaneous
  Country: JP (occurrence: JP)
  Receive Date: 20130805
  Receipt Date: 20131230
  Transmission Date: 20140711
  Serious: Yes (Other)
  Sender: FDA-Public Use
  Company Number: JP-GLAXOSMITHKLINE-B0899694A

PATIENT
  Age: 36 Year
  Sex: Male

DRUGS (7)
  1. HEPSERA 10 [Suspect]
     Indication: CHRONIC HEPATITIS B
     Dosage: 10MG PER DAY
     Route: 048
     Dates: start: 20070127, end: 20130705
  2. HEPSERA 10 [Suspect]
     Indication: CHRONIC HEPATITIS B
     Dosage: 10MG ALTERNATE DAYS
     Route: 048
     Dates: start: 20130706, end: 20130830
  3. ZEFIX 100 [Suspect]
     Indication: CHRONIC HEPATITIS B
     Dosage: 100MG PER DAY
     Route: 048
     Dates: start: 20041113
  4. BARACLUDE [Concomitant]
     Indication: CHRONIC HEPATITIS B
     Dosage: 1MG PER DAY
     Route: 048
     Dates: start: 200701
  5. ALESION [Concomitant]
     Dosage: 20MG PER DAY
     Route: 048
  6. MUCOSTA [Concomitant]
     Dosage: 100MG TWICE PER DAY
     Route: 065
  7. TIGASON [Concomitant]
     Dosage: 10MG TWICE PER DAY
     Route: 048

REACTIONS (5)
  - Hepatitis B [Unknown]
  - Hypophosphataemia [Recovering/Resolving]
  - Osteoporosis [Unknown]
  - Blood alkaline phosphatase increased [Recovered/Resolved]
  - Hepatic function abnormal [Recovered/Resolved]
